FAERS Safety Report 14615761 (Version 1)
Quarter: 2018Q1

REPORT INFORMATION
  Report Type: Spontaneous
  Country: GR (occurrence: GR)
  Receive Date: 20180309
  Receipt Date: 20180309
  Transmission Date: 20180509
  Serious: Yes (Other)
  Sender: FDA-Public Use
  Company Number: GR-ACCORD-064022

PATIENT
  Age: 50 Year
  Sex: Male

DRUGS (9)
  1. CARVEDILOL/CARVEDILOL HYDROCHLODRIDE [Suspect]
     Active Substance: CARVEDILOL HYDROCHLORIDE
     Indication: PRODUCT USED FOR UNKNOWN INDICATION
  2. SACUBITRIL/VALSARTAN [Interacting]
     Active Substance: SACUBITRIL\VALSARTAN
     Indication: OEDEMA PERIPHERAL
     Dosage: DOSE:  STARTING WAS 50 MG 1 X 2 DAILY UP-TITRATED TO 100 MG 1 X 2 DAILY AFTER 3 WEEKS
  3. METFORMIN [Concomitant]
     Active Substance: METFORMIN HYDROCHLORIDE
  4. EPLERENONE. [Suspect]
     Active Substance: EPLERENONE
     Indication: PRODUCT USED FOR UNKNOWN INDICATION
     Dosage: DOSE: 50 MG/DAY (25 MG BID),??LATER DOSE INCREASED AGAIN AT 50 MG/ DAY
  5. SULFAMETHOXAZOLE/TRIMETHOPRIM [Interacting]
     Active Substance: SULFAMETHOXAZOLE\TRIMETHOPRIM
     Indication: URINARY TRACT INFECTION
     Dosage: STRENGTH: 800 MG, 160 MG
  6. FUROSEMIDE. [Concomitant]
     Active Substance: FUROSEMIDE
  7. IBUPROFEN. [Suspect]
     Active Substance: IBUPROFEN
     Indication: OSTEOARTHRITIS
     Dosage: OCCASIONAL USE
  8. ROSUVASTATIN/ROSUVASTATIN CALCIUM [Concomitant]
  9. APIXABAN [Concomitant]
     Active Substance: APIXABAN

REACTIONS (2)
  - Hyperkalaemia [Recovered/Resolved]
  - Drug interaction [Unknown]
